FAERS Safety Report 4700367-0 (Version None)
Quarter: 2005Q2

REPORT INFORMATION
  Report Type: 
  Country: None (occurrence: None)
  Receive Date: 20050209
  Receipt Date: 20050209
  Transmission Date: 20051028
  Serious: No
  Sender: FDA-Public Use
  Company Number: None

PATIENT
  Age: 24 Year
  Sex: Male
  Weight: 89.8122 kg

DRUGS (2)
  1. GENERIC ZANTAC (RANITIDINE) [Suspect]
     Indication: MULTIPLE ALLERGIES
  2. GENERIC ZANTAC (RANITIDINE) [Suspect]
     Indication: RHINITIS

REACTIONS (2)
  - THERAPEUTIC RESPONSE DECREASED [None]
  - THERAPEUTIC RESPONSE UNEXPECTED WITH DRUG SUBSTITUTION [None]
